FAERS Safety Report 10070367 (Version 1)
Quarter: 2014Q2

REPORT INFORMATION
  Report Type: Spontaneous
  Country: GB (occurrence: None)
  Receive Date: 20140408
  Receipt Date: 20140408
  Transmission Date: 20141212
  Serious: Yes (Life-Threatening, Hospitalization)
  Sender: FDA-Public Use
  Company Number: AUR-APL-2014-04107

PATIENT
  Age: 40 Year
  Sex: Male

DRUGS (6)
  1. OLANZAPINE (OLANZAPINE) [Suspect]
     Indication: ANXIETY
     Route: 048
     Dates: start: 20140227, end: 20140306
  2. OLANZAPINE (OLANZAPINE) [Suspect]
     Indication: ASPERGER^S DISORDER
     Route: 048
     Dates: start: 20140227, end: 20140306
  3. IBUPROFEN (IBUPROFEN) [Concomitant]
  4. LORAZEPAM (LORAZEPAM) [Concomitant]
  5. PARACETAMOL (PARACETAMOL) [Concomitant]
  6. TRAZODONE (TRAZODONE) [Concomitant]

REACTIONS (2)
  - Liver function test abnormal [None]
  - Hepatotoxicity [None]
